FAERS Safety Report 9858891 (Version 2)
Quarter: 2015Q1

REPORT INFORMATION
  Report Type: Spontaneous
  Country: US (occurrence: None)
  Receive Date: 20140129
  Receipt Date: 20150130
  Transmission Date: 20150721
  Serious: Yes (Hospitalization)
  Sender: FDA-Public Use
  Company Number: UCM201401-000008

PATIENT
  Age: 50 Year
  Sex: Male

DRUGS (3)
  1. LISINOPRIL. [Suspect]
     Active Substance: LISINOPRIL
  2. HYDROCHLOROTHIAZIDE (HYDROCHLOROTHIAZIDE) [Suspect]
     Active Substance: HYDROCHLOROTHIAZIDE
  3. AMLODIPINE [Suspect]
     Active Substance: AMLODIPINE BESYLATE

REACTIONS (11)
  - Continuous haemodiafiltration [None]
  - Staphylococcal bacteraemia [None]
  - Pericardial effusion [None]
  - Respiratory failure [None]
  - Intentional overdose [None]
  - Renal failure [None]
  - Hypophosphataemia [None]
  - Depressed level of consciousness [None]
  - Shock [None]
  - Hypokalaemia [None]
  - Suicide attempt [None]
